FAERS Safety Report 6750713-1 (Version None)
Quarter: 2010Q2

REPORT INFORMATION
  Report Type: 
  Country: None (occurrence: None)
  Receive Date: 20100602
  Receipt Date: 20100524
  Transmission Date: 20101027
  Serious: No
  Sender: FDA-Public Use
  Company Number: US-BIOGENIDEC-2010BI017427

PATIENT
  Age: 46 Year
  Sex: Female

DRUGS (2)
  1. TYSABRI [Suspect]
     Indication: MULTIPLE SCLEROSIS
     Route: 042
     Dates: start: 20061228, end: 20070419
  2. TYSABRI [Suspect]
     Route: 042
     Dates: start: 20091229

REACTIONS (5)
  - CYSTITIS [None]
  - DRY MOUTH [None]
  - LOSS OF CONTROL OF LEGS [None]
  - TOOTH EXTRACTION [None]
  - TOOTH FRACTURE [None]
